FAERS Safety Report 20378391 (Version 1)
Quarter: 2022Q1

REPORT INFORMATION
  Report Type: Spontaneous
  Country: US (occurrence: None)
  Receive Date: 20220125
  Receipt Date: 20220125
  Transmission Date: 20220424
  Serious: Yes (Other)
  Sender: FDA-Public Use
  Company Number: None

PATIENT
  Age: 79 Year
  Sex: Male
  Weight: 86.2 kg

DRUGS (2)
  1. EVUSHELD [Suspect]
     Active Substance: CILGAVIMAB\TIXAGEVIMAB
     Indication: COVID-19
     Dates: start: 20210112, end: 20210112
  2. Rituximab-ABBS (Truxima) [Concomitant]

REACTIONS (2)
  - Vision blurred [None]
  - Injection related reaction [None]

NARRATIVE: CASE EVENT DATE: 20210112
